FAERS Safety Report 24674595 (Version 2)
Quarter: 2025Q2

REPORT INFORMATION
  Report Type: Spontaneous
  Country: CA (occurrence: CA)
  Receive Date: 20241128
  Receipt Date: 20250619
  Transmission Date: 20250717
  Serious: Yes (Disabling, Other)
  Sender: ABBVIE
  Company Number: CA-ABBVIE-6019624

PATIENT
  Age: 60 Year
  Sex: Male

DRUGS (6)
  1. MESALAMINE [Suspect]
     Active Substance: MESALAMINE
     Indication: Product used for unknown indication
     Route: 065
  2. HYDROCHLOROTHIAZIDE [Concomitant]
     Active Substance: HYDROCHLOROTHIAZIDE
     Indication: Product used for unknown indication
     Route: 065
  3. BUDESONIDE [Suspect]
     Active Substance: BUDESONIDE
     Indication: Product used for unknown indication
     Route: 065
  4. RAMIPRIL [Concomitant]
     Active Substance: RAMIPRIL
     Indication: Product used for unknown indication
  5. INFLECTRA [Suspect]
     Active Substance: INFLIXIMAB-DYYB
     Indication: Colitis ulcerative
     Route: 042
  6. MESALAMINE [Suspect]
     Active Substance: MESALAMINE
     Indication: Product used for unknown indication
     Route: 065

REACTIONS (10)
  - Disability [Recovered/Resolved]
  - Defaecation urgency [Recovered/Resolved]
  - Proctitis [Recovered/Resolved]
  - Haematochezia [Recovered/Resolved]
  - Mucous stools [Recovered/Resolved]
  - Iron deficiency [Recovered/Resolved]
  - Loss of personal independence in daily activities [Recovered/Resolved]
  - Blood pressure diastolic decreased [Recovered/Resolved]
  - Intentional product use issue [Recovered/Resolved]
  - Drug ineffective [Recovered/Resolved]
